FAERS Safety Report 15196893 (Version 2)
Quarter: 2018Q3

REPORT INFORMATION
  Report Type: Spontaneous
  Country: US (occurrence: US)
  Receive Date: 20180725
  Receipt Date: 20180828
  Transmission Date: 20181010
  Serious: Yes (Other)
  Sender: FDA-Public Use
  Company Number: US-ASTRAZENECA-2018SE93405

PATIENT
  Sex: Female

DRUGS (1)
  1. FASENRA [Suspect]
     Active Substance: BENRALIZUMAB
     Route: 058
     Dates: end: 20180718

REACTIONS (5)
  - Rash [Unknown]
  - Anaphylactic reaction [Recovered/Resolved]
  - Swollen tongue [Unknown]
  - Eczema [Unknown]
  - Throat tightness [Unknown]

NARRATIVE: CASE EVENT DATE: 2018
